FAERS Safety Report 15504630 (Version 2)
Quarter: 2018Q4

REPORT INFORMATION
  Report Type: Spontaneous
  Country: US (occurrence: US)
  Receive Date: 20181016
  Receipt Date: 20181129
  Transmission Date: 20190205
  Serious: Yes (Hospitalization)
  Sender: FDA-Public Use
  Company Number: US-SA-2018SA281842

PATIENT
  Age: 52 Year
  Sex: Female

DRUGS (4)
  1. BENADRYL [Concomitant]
     Active Substance: DIPHENHYDRAMINE HYDROCHLORIDE
     Dosage: 50 MG, QD
     Route: 042
     Dates: start: 20181002, end: 20181004
  2. LEMTRADA [Suspect]
     Active Substance: ALEMTUZUMAB
     Indication: MULTIPLE SCLEROSIS RELAPSE
     Dosage: 12 MG, QD
     Route: 041
     Dates: start: 20170925, end: 20170929
  3. SOLU-MEDROL [Concomitant]
     Active Substance: METHYLPREDNISOLONE SODIUM SUCCINATE
     Dosage: 1000 MG, QD
     Route: 042
     Dates: start: 20181002, end: 20181004
  4. LEMTRADA [Suspect]
     Active Substance: ALEMTUZUMAB
     Dosage: 12MG QD
     Route: 041
     Dates: start: 20181002, end: 20181004

REACTIONS (3)
  - Dyspnoea [Unknown]
  - Fibrin D dimer increased [Unknown]
  - Bradycardia [Unknown]

NARRATIVE: CASE EVENT DATE: 2018
